FAERS Safety Report 20780123 (Version 2)
Quarter: 2022Q2

REPORT INFORMATION
  Report Type: Spontaneous
  Country: US (occurrence: US)
  Receive Date: 20220503
  Receipt Date: 20220518
  Transmission Date: 20220721
  Serious: Yes (Other)
  Sender: FDA-Public Use
  Company Number: US-009507513-2204USA009046

PATIENT
  Age: 60 Year
  Sex: Male

DRUGS (2)
  1. KEYTRUDA [Suspect]
     Active Substance: PEMBROLIZUMAB
     Indication: Lung adenocarcinoma
     Dosage: EVERY 21 DAYS (Q3W)
     Route: 042
     Dates: start: 20201220
  2. OXYGEN [Concomitant]
     Active Substance: OXYGEN

REACTIONS (6)
  - Lung adenocarcinoma recurrent [Unknown]
  - Malignant neoplasm progression [Not Recovered/Not Resolved]
  - Pneumonia [Unknown]
  - Therapeutic product effect incomplete [Unknown]
  - Pneumonitis [Unknown]
  - Anxiety [Unknown]

NARRATIVE: CASE EVENT DATE: 20210721
